FAERS Safety Report 8163863-2 (Version None)
Quarter: 2012Q1

REPORT INFORMATION
  Report Type: 
  Country: None (occurrence: None)
  Receive Date: 20120224
  Receipt Date: 20120221
  Transmission Date: 20120608
  Serious: Yes (Hospitalization)
  Sender: FDA-Public Use
  Company Number: PHEH2012US004375

PATIENT
  Sex: Male

DRUGS (1)
  1. EXJADE [Suspect]
     Indication: IRON OVERLOAD
     Dosage: 500 MG TWICE DAILY
     Route: 048
     Dates: start: 20120131

REACTIONS (2)
  - CEREBROVASCULAR ACCIDENT [None]
  - INFECTION [None]
